FAERS Safety Report 9799042 (Version 2)
Quarter: 2014Q1

REPORT INFORMATION
  Report Type: Spontaneous
  Country: US (occurrence: US)
  Receive Date: 20140106
  Receipt Date: 20140106
  Transmission Date: 20141002
  Serious: Yes (Hospitalization)
  Sender: FDA-Public Use
  Company Number: US-GILEAD-2010-0033243

PATIENT
  Age: 65 Year
  Sex: Male

DRUGS (9)
  1. LETAIRIS [Suspect]
     Indication: PULMONARY ARTERIAL HYPERTENSION
     Route: 048
     Dates: start: 20100219
  2. TYVASO [Concomitant]
  3. VIAGRA [Concomitant]
  4. ASPIRIN [Concomitant]
  5. PLAVIX [Concomitant]
  6. LASIX [Concomitant]
  7. MORPHINE [Concomitant]
  8. VITAMIN E [Concomitant]
  9. VITAMIN B 12 [Concomitant]

REACTIONS (1)
  - Dyspnoea [Recovering/Resolving]
